FAERS Safety Report 24200280 (Version 2)
Quarter: 2024Q3

REPORT INFORMATION
  Report Type: Spontaneous
  Country: JP (occurrence: JP)
  Receive Date: 20240812
  Receipt Date: 20240905
  Transmission Date: 20241016
  Serious: Yes (Death)
  Sender: PFIZER
  Company Number: JP-PFIZER INC-PV202400072277

PATIENT
  Age: 65 Year
  Sex: Female
  Weight: 41.2 kg

DRUGS (10)
  1. ELREXFIO [Suspect]
     Active Substance: ELRANATAMAB-BCMM
     Indication: Plasma cell myeloma refractory
     Dosage: 12 MG, 1X/DAY
     Route: 058
     Dates: start: 20240531
  2. ELREXFIO [Suspect]
     Active Substance: ELRANATAMAB-BCMM
     Dosage: 32 MG, 1X/DAY
     Route: 058
     Dates: start: 20240603
  3. ELREXFIO [Suspect]
     Active Substance: ELRANATAMAB-BCMM
     Dosage: 76 MG, WEEKLY EVERY FRIDAY
     Route: 058
     Dates: start: 20240607
  4. MIYA-BM [Concomitant]
     Active Substance: CLOSTRIDIUM BUTYRICUM SPORES STRAIN M-55
     Indication: Dysbiosis
     Dosage: 6 UNKNOWN UNIT, 3X/DAY
  5. DEFERASIROX [Concomitant]
     Active Substance: DEFERASIROX
     Indication: Iron overload
     Dosage: 270 MG, 1X/DAY
  6. MOVICOL [Concomitant]
     Active Substance: POLYETHYLENE GLYCOL 3350\POTASSIUM CHLORIDE\SODIUM BICARBONATE\SODIUM CHLORIDE
     Indication: Constipation
     Dosage: 4 DF, 2X/DAY
  7. HERBALS [Concomitant]
     Active Substance: HERBALS
     Indication: Abdominal distension
     Dosage: 6 DF, 3X/DAY
  8. LINZESS [Concomitant]
     Active Substance: LINACLOTIDE
     Indication: Constipation
     Dosage: 0.25 MG, AS NEEDED
  9. OMEPRAZOLE [Concomitant]
     Active Substance: OMEPRAZOLE
     Indication: Faeces discoloured
     Dosage: 1 DF, 2X/DAY
  10. FIBROGAMMIN P [Concomitant]
     Active Substance: FACTOR XIII CONCENTRATE (HUMAN)
     Indication: Coagulation factor deficiency
     Dosage: 6 DF, DAILY

REACTIONS (8)
  - Neoplasm progression [Fatal]
  - Asthenia [Fatal]
  - Pyrexia [Recovered/Resolved]
  - Injection site pain [Recovered/Resolved]
  - Rhinorrhoea [Not Recovered/Not Resolved]
  - Cough [Not Recovered/Not Resolved]
  - Gastrointestinal motility disorder [Unknown]
  - Decreased appetite [Unknown]

NARRATIVE: CASE EVENT DATE: 20240602
